FAERS Safety Report 7362984-1 (Version None)
Quarter: 2011Q1

REPORT INFORMATION
  Report Type: 
  Country: None (occurrence: None)
  Receive Date: 20110321
  Receipt Date: 20110310
  Transmission Date: 20110831
  Serious: Yes (Death)
  Sender: FDA-Public Use
  Company Number: LB-CELGENEUS-093-20785-10111759

PATIENT

DRUGS (9)
  1. THALIDOMIDE [Suspect]
     Indication: MULTIPLE MYELOMA
     Route: 048
     Dates: start: 20101001, end: 20101015
  2. ERYTHROPOIETIN HUMAN [Concomitant]
     Route: 058
     Dates: end: 20101022
  3. CONCOR [Concomitant]
     Dosage: 2.5 MILLIGRAM
     Route: 048
     Dates: end: 20101022
  4. DUSPATALIN ^DUPHAR^ [Concomitant]
     Dosage: 200 MILLIGRAM
     Route: 048
     Dates: end: 20101022
  5. ORACOL [Concomitant]
     Route: 065
     Dates: end: 20101022
  6. TAPAZOL [Concomitant]
     Dosage: 5 MILLIGRAM
     Route: 048
     Dates: end: 20101022
  7. RABEC [Concomitant]
     Route: 065
     Dates: end: 20101022
  8. TRENTAL [Concomitant]
     Route: 048
     Dates: end: 20101022
  9. AZECOL [Concomitant]
     Route: 065
     Dates: end: 20101022

REACTIONS (1)
  - PANCREATITIS [None]
